FAERS Safety Report 9671227 (Version 1)
Quarter: 2013Q4

REPORT INFORMATION
  Report Type: Spontaneous
  Country: JP (occurrence: JP)
  Receive Date: 20131106
  Receipt Date: 20131106
  Transmission Date: 20140711
  Serious: Yes (Death)
  Sender: FDA-Public Use
  Company Number: JP-BAYER-2013-133609

PATIENT
  Age: 77 Year
  Sex: Female
  Weight: 56 kg

DRUGS (1)
  1. NEXAVAR [Suspect]
     Indication: HEPATOCELLULAR CARCINOMA
     Route: 048

REACTIONS (1)
  - Hepatocellular carcinoma [Fatal]
